FAERS Safety Report 5242833-8 (Version None)
Quarter: 2007Q1

REPORT INFORMATION
  Report Type: 
  Country: None (occurrence: None)
  Receive Date: 20070221
  Receipt Date: 20070213
  Transmission Date: 20070707
  Serious: Yes (Death, Life-Threatening, Hospitalization)
  Sender: FDA-Public Use
  Company Number: US-MERCK-0609USA07247

PATIENT
  Age: 50 Year
  Sex: Male

DRUGS (1)
  1. DECADRON [Suspect]
     Indication: BRAIN OEDEMA
     Route: 048

REACTIONS (3)
  - ACUTE HEPATIC FAILURE [None]
  - HEPATORENAL SYNDROME [None]
  - RESPIRATORY FAILURE [None]
